FAERS Safety Report 7279951-9 (Version None)
Quarter: 2011Q1

REPORT INFORMATION
  Report Type: 
  Country: None (occurrence: None)
  Receive Date: 20110208
  Receipt Date: 20110203
  Transmission Date: 20110831
  Serious: Yes (Disabling)
  Sender: FDA-Public Use
  Company Number: US-ABBOTT-11P-163-0703167-00

PATIENT
  Sex: Male

DRUGS (2)
  1. UNKNOWN MEDICATION FOR DEPRESSION [Concomitant]
     Indication: DEPRESSION
  2. HUMIRA [Suspect]
     Indication: CROHN'S DISEASE
     Dates: start: 20090101

REACTIONS (2)
  - PAIN IN EXTREMITY [None]
  - ABASIA [None]
